FAERS Safety Report 8789387 (Version 1)
Quarter: 2012Q4

REPORT INFORMATION
  Report Type: Spontaneous
  Country: US (occurrence: None)
  Receive Date: 20120904
  Receipt Date: 20120904
  Transmission Date: 20130627
  Serious: Yes (Hospitalization)
  Sender: FDA-Public Use
  Company Number: 2012SGN00374

PATIENT
  Age: 37 Year
  Sex: Male
  Weight: 96.5 kg

DRUGS (8)
  1. BRENTUXIMAB VEDOTIN [Suspect]
     Indication: HODGKIN^S LYMPHOMA
     Dosage: 1.2 mg/kg, qcycle, intravenous
     Route: 042
     Dates: start: 20120323
  2. ADRIAMYCIN [Suspect]
     Indication: HODGKIN^S LYMPHOMA
     Dosage: 25mg/m2, qcycle
     Dates: start: 20120420
  3. VINBLASTINE [Suspect]
     Indication: HODGKIN^S LYMPHOMA
     Dosage: 6 mg/m2, qcycle
     Dates: start: 20120420
  4. DACARBAZINE [Suspect]
     Indication: HODGKIN^S LYMPHOMA
     Dosage: 375 mg/m2, qcycle
     Dates: start: 20120420
  5. OXYCONTIN (OXYCODONE HYDROCHLORIDE) [Concomitant]
  6. PERCOCET (OXYCODONE HYDROCHLORIDE, PARACETAMOL) [Concomitant]
  7. COLACE (DOCUSATE SODIUM) [Concomitant]
  8. MIRALAX (MACROGOL) [Concomitant]

REACTIONS (4)
  - Hidradenitis [None]
  - Neutropenia [None]
  - Gastroenteritis viral [None]
  - Condition aggravated [None]
